FAERS Safety Report 9746223 (Version 3)
Quarter: 2014Q1

REPORT INFORMATION
  Report Type: Spontaneous
  Country: US (occurrence: US)
  Receive Date: 20131211
  Receipt Date: 20140220
  Transmission Date: 20141002
  Serious: Yes (Hospitalization)
  Sender: FDA-Public Use
  Company Number: US-009507513-1312USA004433

PATIENT
  Sex: Female

DRUGS (1)
  1. DULERA [Suspect]
     Dosage: UNK
     Route: 055

REACTIONS (4)
  - Hospitalisation [Unknown]
  - Product taste abnormal [Unknown]
  - Product container issue [Unknown]
  - Incorrect dose administered [Unknown]
